FAERS Safety Report 4290843-X (Version None)
Quarter: 2004Q1

REPORT INFORMATION
  Report Type: 
  Country: None (occurrence: None)
  Receive Date: 20040211
  Receipt Date: 20031009
  Transmission Date: 20041129
  Serious: No
  Sender: FDA-Public Use
  Company Number: US-GLAXOSMITHKLINE-A0429672A

PATIENT
  Age: 85 Year
  Sex: Female

DRUGS (3)
  1. PAXIL [Suspect]
     Indication: DEPRESSION
     Dosage: 20MG PER DAY
     Route: 048
     Dates: end: 20031005
  2. REMERON [Suspect]
     Route: 065
  3. UNKNOWN MEDICATION [Concomitant]

REACTIONS (2)
  - MENTAL IMPAIRMENT [None]
  - MOVEMENT DISORDER [None]
